FAERS Safety Report 5736232-X (Version None)
Quarter: 2008Q2

REPORT INFORMATION
  Report Type: 
  Country: None (occurrence: None)
  Receive Date: 20080506
  Receipt Date: 20080129
  Transmission Date: 20081010
  Serious: Yes (Other)
  Sender: FDA-Public Use
  Company Number: 08-000161

PATIENT
  Age: 67 Year
  Sex: Male
  Weight: 72.6 kg

DRUGS (6)
  1. TACLONEX [Suspect]
     Indication: PSORIASIS
     Dosage: QD, TOPICAL
     Route: 061
     Dates: start: 20080101
  2. LISINOPRIL [Concomitant]
  3. LIPITOR (ATOVRASTATIN CALCIUM) [Concomitant]
  4. BABY ASPIRIN (ACETYSALICYLIC ACID) [Concomitant]
  5. HUMALOG /00030501/ (INSULIN) [Concomitant]
  6. VITAMINS WITH MINERALS [Concomitant]

REACTIONS (1)
  - HYPERGLYCAEMIA [None]
